FAERS Safety Report 18558834 (Version 1)
Quarter: 2020Q4

REPORT INFORMATION
  Report Type: Other
  Country: US (occurrence: US)
  Receive Date: 20201130
  Receipt Date: 20201130
  Transmission Date: 20210114
  Serious: Yes (Other)
  Sender: FDA-Public Use
  Company Number: US-ROCHE-2721572

PATIENT
  Age: 45 Year
  Sex: Female
  Weight: 101.3 kg

DRUGS (3)
  1. TOCILIZUMAB. [Suspect]
     Active Substance: TOCILIZUMAB
     Indication: COVID-19
     Route: 042
  2. KALETRA [Concomitant]
     Active Substance: LOPINAVIR\RITONAVIR
  3. REMDESIVIR. [Concomitant]
     Active Substance: REMDESIVIR

REACTIONS (9)
  - Pneumonia pseudomonal [Unknown]
  - Enterococcal bacteraemia [Unknown]
  - Aspartate aminotransferase increased [Unknown]
  - Off label use [Unknown]
  - Alanine aminotransferase increased [Unknown]
  - Bacteraemia [Unknown]
  - Blood bilirubin increased [Unknown]
  - Intentional product use issue [Unknown]
  - Candida infection [Unknown]
